FAERS Safety Report 12613391 (Version 1)
Quarter: 2016Q3

REPORT INFORMATION
  Report Type: Spontaneous
  Country: US (occurrence: None)
  Receive Date: 20160801
  Receipt Date: 20160801
  Transmission Date: 20161109
  Serious: Yes (Other)
  Sender: FDA-Public Use
  Company Number: None

PATIENT
  Age: 29 Year
  Sex: Female
  Weight: 59.88 kg

DRUGS (1)
  1. FLUTICASONE PROPIONATE. [Suspect]
     Active Substance: FLUTICASONE PROPIONATE
     Indication: BRONCHITIS
     Dosage: 1 SPRAY(S) ONCE A DAY IN EACH NOSTRIL
     Route: 055
     Dates: start: 20160722, end: 20160725

REACTIONS (3)
  - Anosmia [None]
  - Headache [None]
  - Ageusia [None]

NARRATIVE: CASE EVENT DATE: 20160725
